FAERS Safety Report 9004807 (Version 2)
Quarter: 2013Q2

REPORT INFORMATION
  Report Type: Spontaneous
  Country: GB (occurrence: GB)
  Receive Date: 20121227
  Receipt Date: 20130409
  Transmission Date: 20140414
  Serious: Yes (Other)
  Sender: FDA-Public Use
  Company Number: GB-ACCORD-015630

PATIENT
  Age: 55 Year
  Sex: Male

DRUGS (6)
  1. SIMVASTATIN [Suspect]
     Indication: BLOOD CHOLESTEROL INCREASED
     Dosage: 40 MG NOCTE
     Route: 048
     Dates: start: 20110613, end: 20120925
  2. LOSARTAN POTASSIUM [Suspect]
     Indication: BLOOD PRESSURE
     Route: 048
  3. AMLODIPINE [Interacting]
     Indication: HYPERTENSION
     Dosage: INCREASED DOSE FROM 5 MG TO 10 MG.
     Route: 048
     Dates: end: 20120711
  4. PRAVASTATIN SODIUM [Suspect]
     Indication: PRODUCT USED FOR UNKNOWN INDICATION
     Dates: end: 20121206
  5. RAMIPRIL [Suspect]
     Indication: HYPERTENSION
     Dosage: DOSE OF RAMIPRIL GRADUALLY INCREASED FROM 2.5 MG TABLETS TO 5 MG AND THEN 10 MG.
     Route: 048
     Dates: end: 20120711
  6. LERCANIDIPINE [Suspect]
     Indication: BLOOD PRESSURE
     Route: 048

REACTIONS (16)
  - Drug interaction [Unknown]
  - Confusional state [Unknown]
  - Osteoarthritis [Unknown]
  - Gait disturbance [Unknown]
  - Dysstasia [Unknown]
  - Myalgia [Unknown]
  - Blood pressure increased [Unknown]
  - Feeling abnormal [Unknown]
  - Depressed mood [Unknown]
  - Cough [Unknown]
  - Fatigue [Unknown]
  - Product quality issue [Unknown]
  - Dyspnoea [Unknown]
  - Mental impairment [Unknown]
  - Nightmare [Recovered/Resolved]
  - Polymyositis [Unknown]
